FAERS Safety Report 11892375 (Version 1)
Quarter: 2016Q1

REPORT INFORMATION
  Report Type: Not Available
  Country: GB (occurrence: GB)
  Receive Date: 20160106
  Receipt Date: 20160106
  Transmission Date: 20160526
  Serious: Yes (Disabling)
  Sender: FDA-Public Use
  Company Number: GB-SYNTHON BV-NL01PV15_40287

PATIENT
  Age: 66 Year
  Sex: Male
  Weight: 87 kg

DRUGS (3)
  1. CANDESARTAN [Concomitant]
     Active Substance: CANDESARTAN
     Dosage: UNK
  2. TAMSULOSIN [Suspect]
     Active Substance: TAMSULOSIN
     Indication: LOWER URINARY TRACT SYMPTOMS
     Dosage: 400 ?G, QD
     Route: 048
     Dates: start: 2013, end: 20151214
  3. SIMVASTATIN. [Concomitant]
     Active Substance: SIMVASTATIN
     Dosage: UNK

REACTIONS (4)
  - Sneezing [Recovered/Resolved]
  - Nasal congestion [Recovered/Resolved]
  - Eye pain [Recovered/Resolved]
  - Rhinitis [Recovered/Resolved]

NARRATIVE: CASE EVENT DATE: 2013
